FAERS Safety Report 19653917 (Version 3)
Quarter: 2021Q3

REPORT INFORMATION
  Report Type: Report from Study
  Country: US (occurrence: US)
  Receive Date: 20210803
  Receipt Date: 20210902
  Transmission Date: 20211014
  Serious: No
  Sender: FDA-Public Use
  Company Number: US-VERTEX PHARMACEUTICALS-2021-011437

PATIENT
  Age: 7 Year
  Sex: Female

DRUGS (1)
  1. TRIKAFTA [Suspect]
     Active Substance: ELEXACAFTOR\IVACAFTOR\TEZACAFTOR
     Indication: CYSTIC FIBROSIS
     Dosage: (50 MG ELEXACAFTOR/25 MG TEZACAFTOR/37.5  MG IVACAFTOR; 75 MG IVACAFTOR), FULL DOSE
     Route: 048
     Dates: start: 20210629, end: 20210708

REACTIONS (4)
  - Swelling face [Unknown]
  - Photosensitivity reaction [Unknown]
  - Lip swelling [Unknown]
  - Drug eruption [Unknown]

NARRATIVE: CASE EVENT DATE: 20210706
